FAERS Safety Report 24096539 (Version 1)
Quarter: 2024Q3

REPORT INFORMATION
  Report Type: Spontaneous
  Country: GB (occurrence: GB)
  Receive Date: 20240716
  Receipt Date: 20240716
  Transmission Date: 20241017
  Serious: Yes (Death, Life-Threatening, Other)
  Sender: PFIZER
  Company Number: GB-GILEAD-2024-0679788

PATIENT
  Age: 53 Year
  Sex: Male

DRUGS (10)
  1. RIFABUTIN [Interacting]
     Active Substance: RIFABUTIN
     Indication: Bronchopulmonary aspergillosis
     Dosage: UNK
  2. RIFABUTIN [Interacting]
     Active Substance: RIFABUTIN
     Indication: Mycobacterium avium complex infection
  3. VORICONAZOLE [Interacting]
     Active Substance: VORICONAZOLE
     Indication: Mycobacterium avium complex infection
     Dosage: UNK
  4. VORICONAZOLE [Interacting]
     Active Substance: VORICONAZOLE
     Indication: Bronchopulmonary aspergillosis
  5. AMBISOME [Interacting]
     Active Substance: AMPHOTERICIN B
     Indication: Mycobacterium avium complex infection
     Dosage: UNK
  6. AMBISOME [Interacting]
     Active Substance: AMPHOTERICIN B
     Indication: Bronchopulmonary aspergillosis
  7. RIFAMPIN [Interacting]
     Active Substance: RIFAMPIN
     Indication: Mycobacterium avium complex infection
     Dosage: UNK
  8. RIFAMPIN [Interacting]
     Active Substance: RIFAMPIN
     Indication: Bronchopulmonary aspergillosis
  9. POSACONAZOLE [Interacting]
     Active Substance: POSACONAZOLE
     Indication: Bronchopulmonary aspergillosis
     Dosage: UNK
  10. POSACONAZOLE [Interacting]
     Active Substance: POSACONAZOLE
     Indication: Mycobacterium avium complex infection

REACTIONS (6)
  - Bronchopulmonary aspergillosis [Fatal]
  - Mycobacterium avium complex infection [Fatal]
  - Drug ineffective [Unknown]
  - Deafness [Unknown]
  - Drug interaction [Unknown]
  - Drug resistance [Unknown]
